FAERS Safety Report 8375672-X (Version None)
Quarter: 2012Q2

REPORT INFORMATION
  Report Type: 
  Country: None (occurrence: None)
  Receive Date: 20120522
  Receipt Date: 20120517
  Transmission Date: 20120825
  Serious: Yes (Other)
  Sender: FDA-Public Use
  Company Number: US-PFIZER INC-2012121312

PATIENT
  Sex: Male

DRUGS (3)
  1. CELEBREX [Suspect]
     Dosage: UNK
     Dates: start: 20040101
  2. VIAGRA [Suspect]
     Dosage: UNK
     Dates: start: 20040101
  3. NORVASC [Suspect]
     Dosage: UNK
     Dates: start: 20040101

REACTIONS (1)
  - MYOCARDIAL INFARCTION [None]
